FAERS Safety Report 12257649 (Version 2)
Quarter: 2016Q2

REPORT INFORMATION
  Report Type: Report from Study
  Country: FR (occurrence: FR)
  Receive Date: 20160412
  Receipt Date: 20160413
  Transmission Date: 20160815
  Serious: Yes (Other)
  Sender: FDA-Public Use
  Company Number: FR-PFIZER INC-2016186136

PATIENT
  Age: 20 Year
  Sex: Female

DRUGS (8)
  1. DAFALGAN [Concomitant]
     Active Substance: ACETAMINOPHEN
     Indication: PAIN IN EXTREMITY
     Dosage: 500 MG, 4X/DAY
     Dates: start: 2008
  2. CALCIUM SANDOZ /00060701/ [Concomitant]
     Active Substance: CALCIUM GLUCONATE
     Indication: OSTEOPOROSIS
     Dosage: 500 MG, DAILY
     Dates: start: 2006
  3. CODOLIPRANE [Concomitant]
     Active Substance: ACETAMINOPHEN\CODEINE PHOSPHATE
     Indication: PAIN IN EXTREMITY
     Dosage: 1 DF, 4X/DAY
     Dates: start: 2008
  4. NO SUBJECT DRUG [Suspect]
     Active Substance: UNSPECIFIED INGREDIENT
     Dosage: NO DOSE GIVEN
  5. FRAXIPARINE /01437702/ [Suspect]
     Active Substance: NADROPARIN CALCIUM
     Indication: THROMBOSIS
     Dosage: 0.3 ML, 2X/DAY
     Route: 058
     Dates: start: 1999
  6. LUTERAN [Concomitant]
     Active Substance: CHLORMADINONE ACETATE
     Dosage: 10 MG DAILY FROM 14TH TO 25TH DAY OF CYCLE
     Dates: start: 2009
  7. FUMAFER [Concomitant]
     Active Substance: FERROUS FUMARATE
     Dosage: 66 MG, 1X/DAY
     Dates: start: 201508
  8. TARDYFERON [Concomitant]
     Active Substance: FERROUS SULFATE\FOLIC ACID
     Indication: ANAEMIA
     Dosage: 1 DF, DAILY
     Dates: start: 2012, end: 201508

REACTIONS (1)
  - Anaemia [Recovered/Resolved]

NARRATIVE: CASE EVENT DATE: 20150811
